FAERS Safety Report 8614120 (Version 4)
Quarter: 2012Q4

REPORT INFORMATION
  Report Type: 
  Country: JP (occurrence: JP)
  Receive Date: 20120614
  Receipt Date: 20121105
  Transmission Date: 20130627
  Serious: Yes (Hospitalization)
  Sender: FDA-Public Use
  Company Number: JP-JNJFOC-20120604465

PATIENT
  Age: 64 Year
  Sex: Male
  Weight: 42 kg

DRUGS (9)
  1. ITRIZOLE [Suspect]
     Indication: BRONCHOPULMONARY ASPERGILLOSIS
     Route: 048
     Dates: start: 20110604, end: 20120531
  2. KLARICID [Interacting]
     Indication: PNEUMONIA
     Route: 048
     Dates: start: 20120510, end: 20120523
  3. SEISHOKU [Concomitant]
     Indication: PNEUMONIA
     Route: 041
     Dates: start: 20120508, end: 20120517
  4. SULBENICILLIN [Concomitant]
     Indication: PNEUMONIA
     Route: 041
     Dates: start: 20120508, end: 20120517
  5. SOLITA- NO 3 [Concomitant]
     Indication: PNEUMONIA
     Route: 041
     Dates: start: 20120508, end: 20120517
  6. ADONA [Concomitant]
     Indication: BRONCHOPULMONARY ASPERGILLOSIS
     Route: 048
     Dates: start: 20110330, end: 20120425
  7. TRANSAMIN [Concomitant]
     Indication: BRONCHOPULMONARY ASPERGILLOSIS
     Route: 048
     Dates: start: 20110330, end: 20120425
  8. VASOLAN [Concomitant]
     Indication: ARRHYTHMIA SUPRAVENTRICULAR
     Route: 048
     Dates: end: 20120322
  9. MUCOSOLVAN L [Concomitant]
     Indication: BRONCHOPULMONARY ASPERGILLOSIS
     Route: 048
     Dates: start: 20120202, end: 20120328

REACTIONS (2)
  - Eosinophilic pneumonia [Recovering/Resolving]
  - Drug interaction [Recovering/Resolving]
